FAERS Safety Report 12992860 (Version 4)
Quarter: 2017Q4

REPORT INFORMATION
  Report Type: Report from Study
  Country: ES (occurrence: ES)
  Receive Date: 20161202
  Receipt Date: 20171107
  Transmission Date: 20180320
  Serious: Yes (Death, Hospitalization)
  Sender: FDA-Public Use
  Company Number: ES-ROCHE-1858547

PATIENT
  Age: 57 Year
  Sex: Male

DRUGS (13)
  1. INSULINE [Concomitant]
     Active Substance: INSULIN NOS
     Indication: PROPHYLAXIS
     Route: 065
     Dates: start: 20161119, end: 20161121
  2. AMOXICILLIN/CLAVULANIC ACID [Concomitant]
     Active Substance: AMOXICILLIN\CLAVULANIC ACID
     Indication: INFECTION PROPHYLAXIS
     Route: 065
     Dates: start: 20161021, end: 20161030
  3. NAB-PACLITAXEL [Suspect]
     Active Substance: PACLITAXEL
     Indication: NON-SMALL CELL LUNG CANCER STAGE IV
     Dosage: MOST RECENT DOSE 160 MG OF NAB-PACLITAXEL WAS ADMINISTERED ON 18/NOV/2016 PRIOR TO AE ONSET
     Route: 042
     Dates: start: 20161111
  4. ZALDIAR [Concomitant]
     Active Substance: ACETAMINOPHEN\TRAMADOL HYDROCHLORIDE
     Indication: CHEST PAIN
     Route: 065
     Dates: start: 20161115
  5. CARBOPLATIN. [Suspect]
     Active Substance: CARBOPLATIN
     Indication: NON-SMALL CELL LUNG CANCER STAGE IV
     Dosage: INITIAL TARGET AREA UNDER THE CONCENTRATION-TIME CURVE (AUC) OF 6 MG/ML/MIN?THAT WAS ALSO THE MOST R
     Route: 042
     Dates: start: 20161111
  6. OMEPRAZOL [Concomitant]
     Active Substance: OMEPRAZOLE
     Indication: PROPHYLAXIS
     Route: 065
     Dates: start: 20161031, end: 20161121
  7. GLUCOSMON [Concomitant]
     Indication: PROPHYLAXIS
     Route: 065
     Dates: start: 20161121, end: 20161121
  8. ONDANSETRON [Concomitant]
     Active Substance: ONDANSETRON
     Indication: PROPHYLAXIS
     Route: 065
     Dates: start: 20161111, end: 20161111
  9. ATEZOLIZUMAB. [Suspect]
     Active Substance: ATEZOLIZUMAB
     Indication: NON-SMALL CELL LUNG CANCER STAGE IV
     Dosage: THAT WAS ALSO THE MOST RECENT DOSE OF ATEZOLIZUMAB
     Route: 042
     Dates: start: 20161111
  10. ACETILCISTEINA [Concomitant]
     Active Substance: ACETYLCYSTEINE
     Route: 065
     Dates: start: 20161024
  11. DEXKETOPROFENO [Concomitant]
     Indication: CHEST PAIN
     Route: 065
     Dates: start: 20161018
  12. AMIODARONA [Concomitant]
     Active Substance: AMIODARONE
     Indication: PROPHYLAXIS
     Route: 065
     Dates: start: 20161121, end: 20161121
  13. ONDANSETRON [Concomitant]
     Active Substance: ONDANSETRON
     Route: 065
     Dates: start: 20161118, end: 20161118

REACTIONS (1)
  - Pneumonia [Fatal]

NARRATIVE: CASE EVENT DATE: 20161119
